FAERS Safety Report 13181734 (Version 4)
Quarter: 2017Q3

REPORT INFORMATION
  Report Type: Report from Study
  Country: US (occurrence: US)
  Receive Date: 20170202
  Receipt Date: 20170822
  Transmission Date: 20171127
  Serious: Yes (Hospitalization)
  Sender: FDA-Public Use
  Company Number: US-ACTELION-A-NJ2017-149448

PATIENT
  Age: 60 Year
  Sex: Female

DRUGS (14)
  1. CLONIDINE. [Concomitant]
     Active Substance: CLONIDINE
  2. BUMETANIDE. [Concomitant]
     Active Substance: BUMETANIDE
  3. PLAVIX [Concomitant]
     Active Substance: CLOPIDOGREL BISULFATE
  4. AMITIZA [Concomitant]
     Active Substance: LUBIPROSTONE
  5. LEVEMIR [Concomitant]
     Active Substance: INSULIN DETEMIR
  6. HUMALOG [Concomitant]
     Active Substance: INSULIN LISPRO
  7. TRICOR [Concomitant]
     Active Substance: FENOFIBRATE
  8. AVALIDE [Concomitant]
     Active Substance: HYDROCHLOROTHIAZIDE\IRBESARTAN
  9. TRACLEER [Suspect]
     Active Substance: BOSENTAN
     Indication: PULMONARY ARTERIAL HYPERTENSION
     Dosage: 125 MG, BID
     Route: 048
     Dates: start: 20060213
  10. XOPENEX [Concomitant]
     Active Substance: LEVALBUTEROL HYDROCHLORIDE
  11. VERAPAMIL [Concomitant]
     Active Substance: VERAPAMIL HYDROCHLORIDE
  12. EFFEXOR [Concomitant]
     Active Substance: VENLAFAXINE HYDROCHLORIDE
  13. SPIRIVA [Concomitant]
     Active Substance: TIOTROPIUM BROMIDE MONOHYDRATE
  14. SYNTHROID [Concomitant]
     Active Substance: LEVOTHYROXINE SODIUM

REACTIONS (6)
  - Dyspnoea [Recovering/Resolving]
  - Oedema [Recovering/Resolving]
  - Cardiac failure congestive [Recovered/Resolved]
  - Atrial fibrillation [Recovering/Resolving]
  - Cardiac ablation [Recovering/Resolving]
  - Pulmonary arterial pressure increased [Unknown]

NARRATIVE: CASE EVENT DATE: 201611
